FAERS Safety Report 10156591 (Version 1)
Quarter: 2014Q2

REPORT INFORMATION
  Report Type: Spontaneous
  Country: AU (occurrence: AU)
  Receive Date: 20140507
  Receipt Date: 20140507
  Transmission Date: 20141212
  Serious: Yes (Other)
  Sender: FDA-Public Use
  Company Number: AU-ROCHE-1392878

PATIENT
  Sex: Female

DRUGS (4)
  1. AVASTIN [Suspect]
     Indication: OVARIAN CANCER
     Route: 065
  2. CARBOPLATIN [Concomitant]
     Indication: OVARIAN CANCER
  3. GEMZAR [Concomitant]
     Indication: OVARIAN CANCER
  4. TAXOL [Concomitant]

REACTIONS (1)
  - Disease progression [Unknown]
